FAERS Safety Report 17911234 (Version 1)
Quarter: 2020Q2

REPORT INFORMATION
  Report Type: Spontaneous
  Country: US (occurrence: US)
  Receive Date: 20200617
  Receipt Date: 20200617
  Transmission Date: 20200714
  Serious: Yes (Other)
  Sender: FDA-Public Use
  Company Number: None

PATIENT
  Age: 85 Year
  Sex: Male
  Weight: 70.92 kg

DRUGS (19)
  1. CYCLOPHOSPHAMIDE. [Suspect]
     Active Substance: CYCLOPHOSPHAMIDE
     Indication: PLASMA CELL MYELOMA
     Dosage: ?          OTHER FREQUENCY:ONCE WEEKLY;?
     Route: 048
     Dates: start: 20190621
  2. STOOL SOFTENER (DOCUSATE) [Concomitant]
     Active Substance: DOCUSATE
  3. BENZONATATE. [Concomitant]
     Active Substance: BENZONATATE
  4. FINASTERIDE. [Concomitant]
     Active Substance: FINASTERIDE
  5. CALCIUM [Concomitant]
     Active Substance: CALCIUM
  6. PROMETHAZINE [Concomitant]
     Active Substance: PROMETHAZINE HYDROCHLORIDE
  7. ONDANSETRON [Concomitant]
     Active Substance: ONDANSETRON
  8. DEXAMETHASONE. [Concomitant]
     Active Substance: DEXAMETHASONE
  9. MORPHINE [Concomitant]
     Active Substance: MORPHINE
  10. BUDESONIDE. [Concomitant]
     Active Substance: BUDESONIDE
  11. MIRALAX [Concomitant]
     Active Substance: POLYETHYLENE GLYCOL 3350
  12. METOPROLOL. [Concomitant]
     Active Substance: METOPROLOL
  13. ASPIRIN. [Concomitant]
     Active Substance: ASPIRIN
  14. SIMVASTATIN. [Concomitant]
     Active Substance: SIMVASTATIN
  15. FERROUS SULFATE. [Concomitant]
     Active Substance: FERROUS SULFATE
  16. BREO ELLIPTA [Concomitant]
     Active Substance: FLUTICASONE FUROATE\VILANTEROL TRIFENATATE
  17. FUROSEMIDE. [Concomitant]
     Active Substance: FUROSEMIDE
  18. BROVANA [Concomitant]
     Active Substance: ARFORMOTEROL TARTRATE
  19. INCRUSE ELLIPTA [Concomitant]
     Active Substance: UMECLIDINIUM BROMIDE

REACTIONS (1)
  - Disease progression [None]
